FAERS Safety Report 26130083 (Version 1)
Quarter: 2025Q4

REPORT INFORMATION
  Report Type: Spontaneous
  Country: CO (occurrence: CO)
  Receive Date: 20251208
  Receipt Date: 20251208
  Transmission Date: 20260118
  Serious: Yes (Other)
  Sender: ROCHE
  Company Number: CO-ROCHE-10000450178

PATIENT
  Age: 2 Year
  Sex: Male
  Weight: 9 kg

DRUGS (2)
  1. HEMLIBRA [Suspect]
     Active Substance: EMICIZUMAB-KXWH
     Indication: Head injury
     Dosage: FORMULATION:  30 MG/1 ML?FREQUENCY: ACCORDING TO SCHEME
     Route: 058
  2. TRANEXAMIC ACID [Concomitant]
     Active Substance: TRANEXAMIC ACID
     Route: 048

REACTIONS (2)
  - Craniocerebral injury [Unknown]
  - Traumatic haematoma [Unknown]

NARRATIVE: CASE EVENT DATE: 20251130
